FAERS Safety Report 16538484 (Version 1)
Quarter: 2019Q3

REPORT INFORMATION
  Report Type: Spontaneous
  Country: ES (occurrence: ES)
  Receive Date: 20190708
  Receipt Date: 20190708
  Transmission Date: 20191004
  Serious: Yes (Hospitalization, Other)
  Sender: FDA-Public Use
  Company Number: ES-AUROBINDO-AUR-APL-2019-038089

PATIENT

DRUGS (8)
  1. CALCIUM FOLINATE [Suspect]
     Active Substance: LEUCOVORIN CALCIUM
     Indication: PANCREATIC CARCINOMA METASTATIC
     Dosage: 400 MILLIGRAM/SQ. METER, CYCLICAL
     Route: 042
     Dates: start: 20180612
  2. FLUOROURACIL. [Suspect]
     Active Substance: FLUOROURACIL
     Indication: PANCREATIC CARCINOMA METASTATIC
     Dosage: 2400 MILLIGRAM/SQ. METER, CYCLICAL
     Route: 042
     Dates: start: 20180612
  3. OXALIPLATIN. [Suspect]
     Active Substance: OXALIPLATIN
     Indication: PANCREATIC CARCINOMA METASTATIC
     Dosage: 85 MILLIGRAM/SQ. METER, CYCLICAL
     Route: 042
     Dates: start: 20180612
  4. FLUOROURACIL. [Suspect]
     Active Substance: FLUOROURACIL
     Dosage: 400 MILLIGRAM/SQ. METER, CYCLICAL
     Route: 040
     Dates: start: 20180612
  5. OXALIPLATIN. [Suspect]
     Active Substance: OXALIPLATIN
     Dosage: 85 MILLIGRAM/SQ. METER, CYCLICAL
     Route: 042
     Dates: start: 20181211
  6. FLUOROURACIL. [Suspect]
     Active Substance: FLUOROURACIL
     Dosage: 2400 MILLIGRAM/SQ. METER, CYCLICAL
     Route: 042
     Dates: start: 20181211
  7. FLUOROURACIL. [Suspect]
     Active Substance: FLUOROURACIL
     Dosage: 400 MILLIGRAM/SQ. METER, CYCLICAL
     Route: 040
     Dates: start: 20181211
  8. CALCIUM FOLINATE [Suspect]
     Active Substance: LEUCOVORIN CALCIUM
     Dosage: 400 MILLIGRAM/SQ. METER, CYCLICAL
     Route: 042
     Dates: start: 20181211

REACTIONS (1)
  - Peritonsillar abscess [Recovering/Resolving]

NARRATIVE: CASE EVENT DATE: 20190102
